FAERS Safety Report 7776399-5 (Version None)
Quarter: 2011Q3

REPORT INFORMATION
  Report Type: 
  Country: None (occurrence: None)
  Receive Date: 20110926
  Receipt Date: 20110920
  Transmission Date: 20111222
  Serious: Yes (Other)
  Sender: FDA-Public Use
  Company Number: US-PFIZER INC-2011224391

PATIENT
  Sex: Male

DRUGS (7)
  1. HYDROCHLOROTHIAZIDE [Concomitant]
     Dosage: 12.5 MG, AS NEEDED
     Dates: start: 20110830
  2. LYRICA [Suspect]
     Indication: PAIN
     Dosage: 75 MG, 4X/DAY
     Route: 048
     Dates: start: 20060101
  3. VALIUM [Concomitant]
     Dosage: 10 MG, 1X/DAY
     Dates: start: 20110830
  4. CIALIS [Concomitant]
     Dosage: 20 MG,AS DIRECTED
     Dates: start: 20110830
  5. BACLOFEN [Concomitant]
     Dosage: 20 MG, 4X/DAY
     Dates: start: 20110621
  6. LIPITOR [Concomitant]
     Dosage: 10 MG, 1X/DAY
     Dates: start: 20100412
  7. COZAAR [Concomitant]
     Dosage: 100 MG, UNK
     Dates: start: 20110830

REACTIONS (4)
  - NEUROPATHY PERIPHERAL [None]
  - CARDIAC MURMUR [None]
  - CELLULITIS [None]
  - CARDIOVASCULAR DISORDER [None]
